FAERS Safety Report 7609985-3 (Version None)
Quarter: 2011Q3

REPORT INFORMATION
  Report Type: 
  Country: None (occurrence: None)
  Receive Date: 20110714
  Receipt Date: 20110707
  Transmission Date: 20111222
  Serious: Yes (Other)
  Sender: FDA-Public Use
  Company Number: US-RB-030157-11

PATIENT
  Sex: Male

DRUGS (6)
  1. SUBOXONE [Suspect]
     Indication: DRUG DEPENDENCE
     Route: 064
     Dates: start: 20100719, end: 20101001
  2. SUBOXONE [Suspect]
     Indication: DRUG DEPENDENCE
     Route: 064
     Dates: start: 20101001, end: 20110305
  3. SINGULAIR [Concomitant]
     Route: 064
     Dates: start: 20100910, end: 20110305
  4. PROAIR HFA [Concomitant]
     Indication: ASTHMA
     Dosage: 2 PUFFS AS NEEDED
     Route: 064
     Dates: end: 20110305
  5. SINGULAIR [Concomitant]
     Indication: ASTHMA
     Dosage: DOSING DETAILS UNKNOWN
     Route: 064
  6. COMBIVENT [Concomitant]
     Indication: ASTHMA
     Dosage: DOSING DETAILS UNKNOWN
     Route: 055
     Dates: end: 20110305

REACTIONS (3)
  - DYSPHAGIA [None]
  - DRUG WITHDRAWAL SYNDROME NEONATAL [None]
  - MATERNAL EXPOSURE DURING PREGNANCY [None]
